FAERS Safety Report 23778127 (Version 1)
Quarter: 2024Q2

REPORT INFORMATION
  Report Type: Spontaneous
  Country: US (occurrence: None)
  Receive Date: 20240423
  Receipt Date: 20240423
  Transmission Date: 20240716
  Serious: Yes (Hospitalization)
  Sender: FDA-Public Use
  Company Number: None

PATIENT
  Age: 74 Year
  Sex: Male
  Weight: 108 kg

DRUGS (1)
  1. GABAPENTIN [Suspect]
     Active Substance: GABAPENTIN
     Indication: Pain
     Dates: start: 20230329, end: 20230407

REACTIONS (8)
  - Rash [None]
  - Dyspnoea [None]
  - Asthenia [None]
  - Fatigue [None]
  - Dry skin [None]
  - Skin exfoliation [None]
  - Stevens-Johnson syndrome [None]
  - Exfoliative rash [None]

NARRATIVE: CASE EVENT DATE: 20230418
